FAERS Safety Report 20984561 (Version 1)
Quarter: 2022Q2

REPORT INFORMATION
  Report Type: Spontaneous
  Country: US (occurrence: None)
  Receive Date: 20220621
  Receipt Date: 20220621
  Transmission Date: 20220720
  Serious: Yes (Other)
  Sender: FDA-Public Use
  Company Number: US-ROCHE-2892763

PATIENT
  Age: 66 Year
  Sex: Female

DRUGS (40)
  1. XELODA [Suspect]
     Active Substance: CAPECITABINE
     Indication: Product used for unknown indication
     Dosage: 7 ON 7 OFF
     Route: 048
     Dates: start: 20201201
  2. XELODA [Suspect]
     Active Substance: CAPECITABINE
     Route: 048
     Dates: start: 20201206, end: 20201209
  3. XELODA [Suspect]
     Active Substance: CAPECITABINE
     Dosage: 7 DAYS ON/7DAYS OFF
     Route: 048
     Dates: start: 20210112
  4. XELODA [Suspect]
     Active Substance: CAPECITABINE
     Dosage: 7 DAYS ON/7DAYS OFF, AS TOLERATED
     Route: 048
     Dates: start: 20210125
  5. XELODA [Suspect]
     Active Substance: CAPECITABINE
     Dosage: 7 DAYS ON/7DAYS OFF, AS TOLERATED
     Route: 048
     Dates: start: 20210209
  6. XELODA [Suspect]
     Active Substance: CAPECITABINE
     Dosage: 7 DAYS ON/7DAYS OFF, AS TOLERATED, DUE TO INCREASED DIARRHEA
     Route: 048
     Dates: start: 20210223
  7. HERCEPTIN [Suspect]
     Active Substance: TRASTUZUMAB
     Indication: Product used for unknown indication
     Route: 065
     Dates: start: 20201201
  8. HERCEPTIN [Suspect]
     Active Substance: TRASTUZUMAB
     Route: 065
     Dates: start: 20210209
  9. HERCEPTIN [Suspect]
     Active Substance: TRASTUZUMAB
     Route: 065
     Dates: start: 20210223
  10. TUKYSA [Suspect]
     Active Substance: TUCATINIB
     Indication: HER2 positive breast cancer
     Route: 048
     Dates: start: 20210517
  11. TUKYSA [Suspect]
     Active Substance: TUCATINIB
     Route: 048
     Dates: start: 20201203, end: 20201209
  12. TUKYSA [Suspect]
     Active Substance: TUCATINIB
     Route: 048
  13. TUKYSA [Suspect]
     Active Substance: TUCATINIB
     Route: 048
  14. TUKYSA [Suspect]
     Active Substance: TUCATINIB
     Route: 048
     Dates: start: 20210223
  15. TUKYSA [Suspect]
     Active Substance: TUCATINIB
     Route: 048
  16. PERJETA [Suspect]
     Active Substance: PERTUZUMAB
     Indication: Product used for unknown indication
     Route: 065
  17. GLIMEPIRIDE [Concomitant]
     Active Substance: GLIMEPIRIDE
     Dosage: PO, TAKE 5 MG BY MOUTH 2 TIMES DAILY
  18. LETROZOLE [Concomitant]
     Active Substance: LETROZOLE
  19. COREG [Concomitant]
     Active Substance: CARVEDILOL
  20. HYDROCHLOROTHIAZIDE [Concomitant]
     Active Substance: HYDROCHLOROTHIAZIDE
     Dosage: 20/12.5 MG
  21. METFORMIN [Concomitant]
     Active Substance: METFORMIN HYDROCHLORIDE
  22. DIAZEPAM [Concomitant]
     Active Substance: DIAZEPAM
     Dosage: 5 MG TABLET, TAKE 1 TABLET 30 MINUTES BEFORE MRI APPT; MAY REPEAT 2ND DOSE PRIOR TO MRI AS NEEDED FO
  23. GLUCOSAMINE [Concomitant]
     Active Substance: GLUCOSAMINE
     Dosage: TAKE 500 MG BY?MOUTH DAILY
  24. LETROZOLE [Concomitant]
     Active Substance: LETROZOLE
     Dosage: 2.5 MG TABLET, TAKE 1 TABLET BY MOUTH EVERY DAY, DISP: 90 TAB, RFL: 3
  25. ONDANSETRON [Concomitant]
     Active Substance: ONDANSETRON
  26. ASPIRIN [Concomitant]
     Active Substance: ASPIRIN
     Dosage: 81 MG EC TABLET, TAKE 81 MG BY MOUTH DAILY
  27. OMEPRAZOLE [Concomitant]
     Active Substance: OMEPRAZOLE
     Dosage: 40 MG CAPSULE, TAKE 1 CAPSULE BY MOUTH EVERY DAY
  28. CARVEDILOL [Concomitant]
     Active Substance: CARVEDILOL
     Dosage: 25 MG TABLET, TAKE 1 TAB (25 MG) BY MOUTH 2 TIMES DAILY (WITH MEALS), DISP: 180
  29. CYANOCOBALAMIN [Concomitant]
     Active Substance: CYANOCOBALAMIN
     Dosage: (VITAMIN B-12 PO), BY MOUTH
  30. LATANOPROST [Concomitant]
     Active Substance: LATANOPROST
     Dosage: (XALATAN) 0.005 % OPHTHALMIC SOLUTION, 1 DROP NIGHTLY
  31. LEVOBUNOLOL HYDROCHLORIDE [Concomitant]
     Active Substance: LEVOBUNOLOL HYDROCHLORIDE
  32. CHOLECALCIFEROL [Concomitant]
     Active Substance: CHOLECALCIFEROL
     Dosage: 2000 UNITS TABS, TAKE BY MOUTH DAILY
  33. ATORVASTATIN [Concomitant]
     Active Substance: ATORVASTATIN
     Dosage: 10 MG TABLET, TAKE 40 MG BY MOUTH DAILY
  34. BRIMONIDINE [Concomitant]
     Active Substance: BRIMONIDINE TARTRATE
  35. AMARYL [Concomitant]
     Active Substance: GLIMEPIRIDE
  36. LISINOPRIL [Concomitant]
     Active Substance: LISINOPRIL
  37. GLYBURIDE [Concomitant]
     Active Substance: GLYBURIDE
  38. ATORVASTATIN [Concomitant]
     Active Substance: ATORVASTATIN
  39. SELENIUM [Concomitant]
     Active Substance: SELENIUM
  40. FEMARA [Concomitant]
     Active Substance: LETROZOLE

REACTIONS (13)
  - Onychoclasis [Recovered/Resolved]
  - Pain [Recovered/Resolved]
  - Anaemia [Unknown]
  - Neutropenia [Unknown]
  - Thrombocytopenia [Unknown]
  - Oral pain [Unknown]
  - Nausea [Unknown]
  - Vomiting [Unknown]
  - Diarrhoea [Recovered/Resolved]
  - Neuropathy peripheral [Unknown]
  - Fatigue [Unknown]
  - Dehydration [Unknown]
  - Lymphoedema [Unknown]

NARRATIVE: CASE EVENT DATE: 20210520
